FAERS Safety Report 20744959 (Version 1)
Quarter: 2022Q2

REPORT INFORMATION
  Report Type: Spontaneous
  Country: AR (occurrence: AR)
  Receive Date: 20220425
  Receipt Date: 20220425
  Transmission Date: 20220721
  Serious: Yes (Other)
  Sender: FDA-Public Use
  Company Number: AR-PFIZER INC-202200580161

PATIENT
  Age: 19 Year
  Sex: Female

DRUGS (1)
  1. GENOTROPIN [Suspect]
     Active Substance: SOMATROPIN
     Indication: Growth hormone deficiency
     Dosage: 1.0 TO 1.4 MG SEVEN TIMES PER WEEK
     Dates: start: 20140106, end: 202202

REACTIONS (2)
  - Pancreatitis [Recovered/Resolved]
  - Gallbladder disorder [Recovered/Resolved]
